FAERS Safety Report 10181700 (Version 1)
Quarter: 2014Q2

REPORT INFORMATION
  Report Type: Report from Study
  Country: IE (occurrence: IE)
  Receive Date: 20140519
  Receipt Date: 20140519
  Transmission Date: 20141212
  Serious: Yes (Hospitalization, Other)
  Sender: FDA-Public Use
  Company Number: US-ASTRAZENECA-2013SE91759

PATIENT
  Age: 1 Year
  Sex: Male
  Weight: 12.5 kg

DRUGS (3)
  1. SYNAGIS [Suspect]
     Indication: MUSCULAR DYSTROPHY
     Route: 030
  2. MOVICOL [Concomitant]
     Indication: CONSTIPATION
     Route: 048
  3. BABY VIT D [Concomitant]
     Route: 048

REACTIONS (4)
  - Lower respiratory tract infection [Recovered/Resolved]
  - Productive cough [Recovered/Resolved]
  - Vomiting [Recovered/Resolved]
  - Cardiac disorder [Unknown]
